FAERS Safety Report 17836658 (Version 1)
Quarter: 2020Q2

REPORT INFORMATION
  Report Type: Spontaneous
  Country: US (occurrence: US)
  Receive Date: 20200528
  Receipt Date: 20200528
  Transmission Date: 20200714
  Serious: No
  Sender: FDA-Public Use
  Company Number: US-BAUSCH-BL-2020-015519

PATIENT
  Age: 63 Year
  Sex: Female

DRUGS (1)
  1. XIFAXAN [Suspect]
     Active Substance: RIFAXIMIN
     Indication: IRRITABLE BOWEL SYNDROME
     Dosage: STARTED APPROXIMATELY 10 YEARS AGO
     Route: 048

REACTIONS (4)
  - Incorrect product administration duration [Unknown]
  - Product prescribing error [Unknown]
  - Irritable bowel syndrome [Not Recovered/Not Resolved]
  - Symptom recurrence [Not Recovered/Not Resolved]
